FAERS Safety Report 10527322 (Version 1)
Quarter: 2014Q4

REPORT INFORMATION
  Report Type: Spontaneous
  Country: US (occurrence: US)
  Receive Date: 20141020
  Receipt Date: 20141020
  Transmission Date: 20150528
  Serious: Yes (Other)
  Sender: FDA-Public Use
  Company Number: US-JNJCP-30000245384

PATIENT
  Sex: Male
  Weight: 73 kg

DRUGS (1)
  1. AVEENO POSITIVELY AGELESS DAILY MOISTURIZER SPF 30 [Suspect]
     Active Substance: AVOBENZONE\HOMOSALATE\OCTISALATE\OCTOCRYLENE\OXYBENZONE
     Indication: MILIARIA
     Dosage: ONE PUMP, ONCE
     Route: 061
     Dates: start: 20141005, end: 20141005

REACTIONS (8)
  - Application site swelling [Not Recovered/Not Resolved]
  - Ocular hyperaemia [Not Recovered/Not Resolved]
  - Accidental exposure to product [Not Recovered/Not Resolved]
  - Pharyngeal oedema [Not Recovered/Not Resolved]
  - Off label use [Unknown]
  - Application site erythema [Not Recovered/Not Resolved]
  - Application site urticaria [Not Recovered/Not Resolved]
  - Eye swelling [Not Recovered/Not Resolved]

NARRATIVE: CASE EVENT DATE: 20141005
